FAERS Safety Report 11215938 (Version 4)
Quarter: 2015Q4

REPORT INFORMATION
  Report Type: Spontaneous
  Country: JP (occurrence: JP)
  Receive Date: 20150624
  Receipt Date: 20151113
  Transmission Date: 20160304
  Serious: Yes (Hospitalization)
  Sender: FDA-Public Use
  Company Number: JP-MERCK-1506JPN010984

PATIENT
  Age: 79 Year
  Sex: Female

DRUGS (19)
  1. RAMELTEON [Concomitant]
     Active Substance: RAMELTEON
     Indication: ANXIETY
  2. ROHYPNOL [Suspect]
     Active Substance: FLUNITRAZEPAM
     Indication: ANXIETY
  3. ZOLPIDEM TARTRATE. [Concomitant]
     Active Substance: ZOLPIDEM TARTRATE
     Indication: INSOMNIA
     Dosage: 10(UNIT UNKNOWN),QD
     Route: 048
     Dates: start: 20141118
  4. CLONAZEPAM. [Concomitant]
     Active Substance: CLONAZEPAM
     Indication: INSOMNIA
     Dosage: 0.5(UNIT UNKNOWN),QD
     Route: 048
     Dates: start: 20130122, end: 20150327
  5. OLANZAPINE. [Concomitant]
     Active Substance: OLANZAPINE
     Indication: INSOMNIA
     Dosage: 1(UNIT UNKNOWN),QD
     Route: 048
     Dates: start: 20130501
  6. OLANZAPINE. [Concomitant]
     Active Substance: OLANZAPINE
     Indication: ANXIETY
  7. LORAZEPAM. [Concomitant]
     Active Substance: LORAZEPAM
     Indication: ANXIETY
  8. CLONAZEPAM. [Concomitant]
     Active Substance: CLONAZEPAM
     Indication: ANXIETY
  9. RAMELTEON [Concomitant]
     Active Substance: RAMELTEON
     Indication: INSOMNIA
     Dosage: 8(UNIT UNKNOWN),QD
     Route: 048
     Dates: start: 20141014, end: 20150602
  10. LORAZEPAM. [Concomitant]
     Active Substance: LORAZEPAM
     Indication: INSOMNIA
     Dosage: 0.5(UNIT UNKNOWN),QD
     Route: 048
     Dates: start: 20150130
  11. ROHYPNOL [Suspect]
     Active Substance: FLUNITRAZEPAM
     Indication: INSOMNIA
     Dosage: 2(UNIT UNKNOWN),QD
     Route: 048
     Dates: start: 20150317, end: 20150602
  12. LEVOMEPROMAZINE MALEATE [Concomitant]
     Active Substance: LEVOMEPROMAZINE MALEATE
     Indication: INSOMNIA
     Dosage: 10(UNIT UNKNOWN),QD
     Route: 048
     Dates: start: 20140802, end: 20150602
  13. BROTIZOLAM [Concomitant]
     Active Substance: BROTIZOLAM
     Indication: INSOMNIA
     Dosage: 0.5(UNIT UNKNOWN),QD
     Route: 048
     Dates: start: 20141003, end: 20150602
  14. ZOLPIDEM TARTRATE. [Concomitant]
     Active Substance: ZOLPIDEM TARTRATE
     Indication: ANXIETY
  15. REFLEX [Suspect]
     Active Substance: MIRTAZAPINE
     Indication: INSOMNIA
     Dosage: 30 MG, QD
     Route: 048
     Dates: start: 20130301, end: 20150602
  16. REFLEX [Suspect]
     Active Substance: MIRTAZAPINE
     Indication: ANXIETY
  17. REFLEX [Suspect]
     Active Substance: MIRTAZAPINE
     Indication: DEPRESSION
  18. LEVOMEPROMAZINE MALEATE [Concomitant]
     Active Substance: LEVOMEPROMAZINE MALEATE
     Indication: ANXIETY
  19. BROTIZOLAM [Concomitant]
     Active Substance: BROTIZOLAM
     Indication: ANXIETY

REACTIONS (1)
  - Interstitial lung disease [Recovered/Resolved]

NARRATIVE: CASE EVENT DATE: 20150527
